FAERS Safety Report 7227993-1 (Version None)
Quarter: 2011Q1

REPORT INFORMATION
  Report Type: 
  Country: None (occurrence: None)
  Receive Date: 20110112
  Receipt Date: 20110112
  Transmission Date: 20110831
  Serious: Yes (Life-Threatening, Hospitalization)
  Sender: FDA-Public Use
  Company Number: None

PATIENT
  Age: 48 Year
  Sex: Female
  Weight: 106.5953 kg

DRUGS (1)
  1. COPAXONE [Suspect]
     Indication: MULTIPLE SCLEROSIS
     Dosage: 20MG DAILY SQ
     Route: 058
     Dates: start: 20100926, end: 20101218

REACTIONS (6)
  - LOCAL SWELLING [None]
  - DRUG HYPERSENSITIVITY [None]
  - PARAESTHESIA [None]
  - THROAT TIGHTNESS [None]
  - EYE SWELLING [None]
  - NAUSEA [None]
